FAERS Safety Report 9800079 (Version 3)
Quarter: 2014Q2

REPORT INFORMATION
  Report Type: Spontaneous
  Country: DZ (occurrence: DZ)
  Receive Date: 20140106
  Receipt Date: 20140401
  Transmission Date: 20141212
  Serious: Yes (Other)
  Sender: FDA-Public Use
  Company Number: DZ-US-EMD SERONO, INC.-7260193

PATIENT
  Age: 46 Year
  Sex: Female

DRUGS (2)
  1. REBIF [Suspect]
     Indication: MULTIPLE SCLEROSIS
     Route: 058
     Dates: start: 20121204, end: 20131222
  2. LIORESAL [Concomitant]
     Indication: MUSCLE CONTRACTURE
     Route: 048

REACTIONS (1)
  - Thyroiditis acute [Recovering/Resolving]
